FAERS Safety Report 4747833-X (Version None)
Quarter: 2005Q3

REPORT INFORMATION
  Report Type: 
  Country: None (occurrence: None)
  Receive Date: 20050816
  Receipt Date: 20050808
  Transmission Date: 20060218
  Serious: Yes (Hospitalization)
  Sender: FDA-Public Use
  Company Number: 200511600BCC

PATIENT
  Age: 51 Year
  Sex: Female
  Weight: 45.3597 kg

DRUGS (2)
  1. ALEVE [Suspect]
     Indication: NASOPHARYNGITIS
     Dosage: 880 MG, TOTAL DAILY, ORAL
     Route: 048
     Dates: start: 20050320, end: 20050324
  2. NORTRIPTYLINE HCL [Concomitant]

REACTIONS (3)
  - CEREBRAL HAEMORRHAGE [None]
  - CEREBROVASCULAR ACCIDENT [None]
  - HEMIPLEGIA [None]
